FAERS Safety Report 21472708 (Version 1)
Quarter: 2022Q4

REPORT INFORMATION
  Report Type: Other
  Country: CN (occurrence: None)
  Receive Date: 20221018
  Receipt Date: 20221018
  Transmission Date: 20230113
  Serious: Yes (Hospitalization)
  Sender: FDA-Public Use
  Company Number: CN-ROCHE-3200633

PATIENT
  Age: 63 Year
  Sex: Male

DRUGS (2)
  1. VEMURAFENIB [Suspect]
     Active Substance: VEMURAFENIB
     Indication: Lung neoplasm malignant
     Route: 048
     Dates: start: 202012
  2. CATEQUENTINIB [Suspect]
     Active Substance: CATEQUENTINIB
     Indication: Lung neoplasm malignant
     Dosage: TOTAL 6 CYCLES
     Route: 065
     Dates: start: 202012

REACTIONS (1)
  - Acute myocardial infarction [Recovered/Resolved]
